FAERS Safety Report 6411869-3 (Version None)
Quarter: 2009Q4

REPORT INFORMATION
  Report Type: 
  Country: None (occurrence: None)
  Receive Date: 20091020
  Receipt Date: 20091007
  Transmission Date: 20100525
  Serious: Yes (Death, Hospitalization)
  Sender: FDA-Public Use
  Company Number: 2009AC000170

PATIENT
  Age: 66 Year
  Sex: Male

DRUGS (60)
  1. DIGOXIN [Suspect]
     Dosage: 0.125 MG; QD; PO
     Route: 048
     Dates: start: 20080401
  2. XANAX [Concomitant]
  3. NORCO [Concomitant]
  4. ASPIRIN [Concomitant]
  5. PLAVIX [Concomitant]
  6. DECADRON [Concomitant]
  7. CARDIZEM [Concomitant]
  8. LASIX [Concomitant]
  9. LEVAQUIN [Concomitant]
  10. OXYCONTIN [Concomitant]
  11. PROTONIX [Concomitant]
  12. EFFEXOR [Concomitant]
  13. COZAAR [Concomitant]
  14. LOPRESSOR [Concomitant]
  15. LIPITOR [Concomitant]
  16. PROPOXYPHENE NAPAYLATE [Concomitant]
  17. TOPROL-XL [Concomitant]
  18. HYZAAR [Concomitant]
  19. ALPRAZOLAM [Concomitant]
  20. MIRALAX [Concomitant]
  21. DOK [Concomitant]
  22. ISOSORB [Concomitant]
  23. SULFADIAZINE AND TRIMETHOPRIM [Concomitant]
  24. HYOSCYAMINE [Concomitant]
  25. TOPROL-XL [Concomitant]
  26. HYDROCODONE [Concomitant]
  27. CEPHALEXIN [Concomitant]
  28. VISICOL [Concomitant]
  29. OXYBUTYNIN CHLORIDE [Concomitant]
  30. NITROSTAT [Concomitant]
  31. ALBUTEROL [Concomitant]
  32. DUONEB [Concomitant]
  33. ASPIRIN [Concomitant]
  34. EFFEXOR [Concomitant]
  35. DOPAMINE HCL [Concomitant]
  36. VANCOMYCIN [Concomitant]
  37. CELTRIAXONE [Concomitant]
  38. NITROGLYCERIN [Concomitant]
  39. MORPHINE SULFATE [Concomitant]
  40. IPRATROPIUM BROMIDE [Concomitant]
  41. METOPROLOL TARTRATE [Concomitant]
  42. HYDROCODONE [Concomitant]
  43. DEXAMETHASONE [Concomitant]
  44. ALPRAZOLAM [Concomitant]
  45. SODIUM CHLORIDE [Concomitant]
  46. ZOSYN [Concomitant]
  47. MAGNESIUM OXIDE [Concomitant]
  48. TOPROL-XL [Concomitant]
  49. DILTIAZEM [Concomitant]
  50. FAMOTIDINE [Concomitant]
  51. MIRALAX [Concomitant]
  52. CALCIUM [Concomitant]
  53. SENNOSIDE [Concomitant]
  54. SULCRAFATE [Concomitant]
  55. VENLAFAXINE [Concomitant]
  56. MORPHINE [Concomitant]
  57. PULMICORT [Concomitant]
  58. XOPENEX [Concomitant]
  59. DUONEB [Concomitant]
  60. ISOSORBIDE [Concomitant]

REACTIONS (21)
  - ABDOMINAL PAIN [None]
  - ACUTE CORONARY SYNDROME [None]
  - APPARENT DEATH [None]
  - ASTHENIA [None]
  - BACK PAIN [None]
  - BALANCE DISORDER [None]
  - BLOOD PRESSURE ABNORMAL [None]
  - CARDIAC DISORDER [None]
  - CHRONIC OBSTRUCTIVE PULMONARY DISEASE [None]
  - CORONARY ARTERY DISEASE [None]
  - COUGH [None]
  - DYSPNOEA [None]
  - LEFT ATRIAL DILATATION [None]
  - MEMORY IMPAIRMENT [None]
  - MULTIPLE INJURIES [None]
  - MYOCARDIAL INFARCTION [None]
  - NON-SMALL CELL LUNG CANCER METASTATIC [None]
  - PAIN [None]
  - PAIN IN EXTREMITY [None]
  - URETERIC CANCER [None]
  - WHEEZING [None]
